FAERS Safety Report 9226636 (Version 1)
Quarter: 2013Q2

REPORT INFORMATION
  Report Type: Spontaneous
  Country: US (occurrence: US)
  Receive Date: 20130412
  Receipt Date: 20130412
  Transmission Date: 20140414
  Serious: No
  Sender: FDA-Public Use
  Company Number: US-PFIZER INC-2013113675

PATIENT
  Sex: Female

DRUGS (2)
  1. CORTEF [Suspect]
     Dosage: UNK
  2. FLUDROCORTISONE [Suspect]
     Dosage: UNK

REACTIONS (5)
  - Hypersensitivity [Unknown]
  - Thirst [Unknown]
  - Lethargy [Unknown]
  - Feeling hot [Unknown]
  - Cough [Unknown]
